FAERS Safety Report 23722189 (Version 1)
Quarter: 2024Q2

REPORT INFORMATION
  Report Type: Spontaneous
  Country: US (occurrence: None)
  Receive Date: 20240408
  Receipt Date: 20240408
  Transmission Date: 20240717
  Serious: Yes (Other)
  Sender: FDA-Public Use
  Company Number: None

PATIENT
  Age: 75 Year
  Sex: Female

DRUGS (1)
  1. MIEBO [Suspect]
     Active Substance: PERFLUOROHEXYLOCTANE
     Dosage: 3 ML 4 TIMES A DAY OPHTHALMIC
     Route: 047
     Dates: start: 20240327, end: 20240404

REACTIONS (5)
  - Mood swings [None]
  - Depression [None]
  - Fatigue [None]
  - Brain fog [None]
  - Feeling abnormal [None]

NARRATIVE: CASE EVENT DATE: 20240330
